FAERS Safety Report 4385680-1 (Version None)
Quarter: 2004Q2

REPORT INFORMATION
  Report Type: 
  Country: None (occurrence: None)
  Receive Date: 20040622
  Receipt Date: 20040614
  Transmission Date: 20050107
  Serious: Yes (Other)
  Sender: FDA-Public Use
  Company Number: A0511638A

PATIENT
  Age: 68 Year
  Sex: Female
  Weight: 65.3633 kg

DRUGS (6)
  1. NICODERM CQ [Suspect]
     Indication: EX-SMOKER
     Dosage: 21 MG/PER DAY/TRANSDERMAL
     Route: 062
     Dates: start: 20040504, end: 20040501
  2. LANSOPRAZOLE [Concomitant]
  3. QUININE [Concomitant]
  4. FUROSEMIDE [Concomitant]
  5. SALMETEROL XINAFOATE [Concomitant]
  6. POTASSIUM CHORIDE [Concomitant]

REACTIONS (3)
  - BLINDNESS TRANSIENT [None]
  - PARALYSIS [None]
  - RASH PAPULAR [None]
